FAERS Safety Report 26168504 (Version 1)
Quarter: 2025Q4

REPORT INFORMATION
  Report Type: Spontaneous
  Country: US (occurrence: US)
  Receive Date: 20251217
  Receipt Date: 20251217
  Transmission Date: 20260117
  Serious: Yes (Life-Threatening, Hospitalization)
  Sender: TEVA
  Company Number: US-TEVA-VS-3402100

PATIENT
  Age: 54 Year
  Sex: Male

DRUGS (1)
  1. PREDNISOLONE [Suspect]
     Active Substance: PREDNISOLONE
     Indication: Bursitis
     Route: 048

REACTIONS (6)
  - Catecholamine crisis [Recovering/Resolving]
  - Tumour haemorrhage [Recovering/Resolving]
  - Phaeochromocytoma [Recovering/Resolving]
  - Hypertensive emergency [Recovering/Resolving]
  - Respiratory failure [Recovering/Resolving]
  - Acute kidney injury [Recovering/Resolving]
